FAERS Safety Report 18689747 (Version 1)
Quarter: 2020Q4

REPORT INFORMATION
  Report Type: Report from Study
  Country: ES (occurrence: ES)
  Receive Date: 20201231
  Receipt Date: 20201231
  Transmission Date: 20210114
  Serious: Yes (Other)
  Sender: FDA-Public Use
  Company Number: ES-CELGENEUS-ESP-20201208274

PATIENT
  Age: 79 Year
  Sex: Female
  Weight: 74 kg

DRUGS (12)
  1. FUROSEMIDE/TRIAMTERENO (SALIDUR) [Concomitant]
     Indication: HYPERTENSION
     Dosage: 77.6 MG X 4 X 1 DAYS
     Route: 048
     Dates: start: 20160525
  2. METAMYZOLE (NOLOTIL) [Concomitant]
     Indication: POST HERPETIC NEURALGIA
     Dosage: 5 ML X AD LIBITUM
     Route: 048
     Dates: start: 20200210
  3. OXICODONE/NALOXONE (TARGIN) [Concomitant]
     Indication: POST HERPETIC NEURALGIA
     Dosage: 5 MG X 3 X 1 DAYS
     Route: 048
     Dates: start: 20200312
  4. PREGABALINE (LYRICA) [Concomitant]
     Indication: POST HERPETIC NEURALGIA
     Dosage: 75/150 MG X 4 X 1 DAYS
     Route: 048
     Dates: start: 20200218
  5. DESKETROPOFENO (ENANTYUM) [Concomitant]
     Indication: POST HERPETIC NEURALGIA
     Dosage: 25 MG X AD LIBITUM
     Route: 048
     Dates: start: 20200217
  6. APIXABAN [Concomitant]
     Active Substance: APIXABAN
     Indication: THROMBOSIS PROPHYLAXIS
     Dosage: 5 MG X 2 X 1 DAYS
     Route: 048
     Dates: start: 20181231
  7. CAPSAICINA (QTENZA) [Concomitant]
     Indication: POST HERPETIC NEURALGIA
     Dosage: 179 MG X 1 X 3 MONTHS
     Route: 062
     Dates: start: 20200831
  8. FEDRATINIB [Suspect]
     Active Substance: FEDRATINIB
     Indication: PRIMARY MYELOFIBROSIS
     Dosage: 400 MG X 1 X 1 DAYS
     Route: 048
     Dates: start: 20200818
  9. BISOPROLOL [Concomitant]
     Active Substance: BISOPROLOL
     Indication: HYPERTENSION
     Dosage: 7.5 MG X 4 X 1 DAYS
     Route: 048
     Dates: start: 20200308
  10. DIGOXINE [Concomitant]
     Active Substance: DIGOXIN
     Indication: PRODUCT USED FOR UNKNOWN INDICATION
     Dosage: 0.25 MG X 4 X 1 DAYS
     Route: 048
     Dates: start: 20181231
  11. LIDOCAINE. [Concomitant]
     Active Substance: LIDOCAINE
     Indication: POST HERPETIC NEURALGIA
     Dosage: 50 MG X 2 X 1 DAYS
     Route: 062
     Dates: start: 20200221
  12. PARACETAMOL [Concomitant]
     Active Substance: ACETAMINOPHEN
     Indication: POST HERPETIC NEURALGIA
     Dosage: 1000 MG X AD LIBITUM
     Route: 048
     Dates: start: 20200417

REACTIONS (2)
  - Wernicke^s encephalopathy [Recovered/Resolved]
  - Oral fungal infection [Recovering/Resolving]

NARRATIVE: CASE EVENT DATE: 20200926
